FAERS Safety Report 9336791 (Version 1)
Quarter: 2013Q2

REPORT INFORMATION
  Report Type: Spontaneous
  Country: DE (occurrence: DE)
  Receive Date: 20130607
  Receipt Date: 20130607
  Transmission Date: 20140414
  Serious: Yes (Hospitalization)
  Sender: FDA-Public Use
  Company Number: DE-AMGEN-DEUSP2013039759

PATIENT
  Age: 24 Year
  Sex: Female
  Weight: 90 kg

DRUGS (1)
  1. NEUPOGEN [Suspect]
     Indication: STEM CELL DONOR
     Dosage: 1 DF DOSAGE FORM EVERY DAYS
     Route: 065
     Dates: start: 20120622, end: 20120625

REACTIONS (1)
  - Thrombosis [Recovering/Resolving]
